FAERS Safety Report 5829993-2 (Version None)
Quarter: 2008Q3

REPORT INFORMATION
  Report Type: 
  Country: None (occurrence: None)
  Receive Date: 20080731
  Receipt Date: 20080731
  Transmission Date: 20090109
  Serious: Yes (Hospitalization)
  Sender: FDA-Public Use
  Company Number: None

PATIENT
  Sex: Female
  Weight: 88.6 kg

DRUGS (4)
  1. CISPLATIN [Suspect]
     Dosage: 99 MG
  2. DOXORUBICIN HYDROCHLORIDE [Suspect]
     Dosage: 89 MG
  3. G-CSF (FILGRASTIM, AMGEN) [Suspect]
     Dosage: 300 MCG
  4. TAXOL [Suspect]
     Dosage: 316.8 MG

REACTIONS (5)
  - ANAEMIA [None]
  - HAEMORRHAGE [None]
  - PAIN [None]
  - PYREXIA [None]
  - UNEVALUABLE EVENT [None]
